FAERS Safety Report 9913058 (Version 1)
Quarter: 2014Q1

REPORT INFORMATION
  Report Type: Spontaneous
  Country: US (occurrence: None)
  Receive Date: 20140214
  Receipt Date: 20140214
  Transmission Date: 20141002
  Serious: Yes (Hospitalization, Other)
  Sender: FDA-Public Use
  Company Number: AUR-APL-2014-01488

PATIENT
  Age: 66 Year
  Sex: Male

DRUGS (4)
  1. TRIMETHOPRIM+SULFAMETHOXAZOLE [Suspect]
     Indication: URINARY TRACT INFECTION
  2. DIGOXIN (DIGOXIN) [Concomitant]
  3. AMIODARONE (AMIODARONE) [Concomitant]
  4. WARFARIN (WARFARIN) [Concomitant]

REACTIONS (7)
  - Hepatotoxicity [None]
  - Drug ineffective [None]
  - Drug-induced liver injury [None]
  - Nephrolithiasis [None]
  - Pyelonephritis [None]
  - Coagulopathy [None]
  - Thrombocytopenia [None]
